FAERS Safety Report 7615612-1 (Version None)
Quarter: 2011Q3

REPORT INFORMATION
  Report Type: 
  Country: None (occurrence: None)
  Receive Date: 20110711
  Receipt Date: 20110613
  Transmission Date: 20111222
  Serious: Yes (Hospitalization)
  Sender: FDA-Public Use
  Company Number: 15110067

PATIENT
  Age: 73 Year
  Sex: Male

DRUGS (6)
  1. SPIRONOLACTONE [Concomitant]
  2. WARFARIN SODIUM [Suspect]
     Indication: THROMBOSIS PROPHYLAXIS
     Dosage: 2 MILLIGRAM 1 DAY ORAL
     Route: 048
     Dates: start: 20090330
  3. ENALAPRIL MALEATE [Concomitant]
  4. AMIODARONE (AMIODARONE HCL) [Concomitant]
  5. PLACEBO [Suspect]
     Indication: THROMBOSIS PROPHYLAXIS
     Dosage: ORAL
     Route: 048
     Dates: start: 20090330
  6. FORSENID (SENNA) [Concomitant]

REACTIONS (3)
  - DISEASE PROGRESSION [None]
  - CARDIAC FAILURE [None]
  - CONDITION AGGRAVATED [None]
